FAERS Safety Report 7623266-3 (Version None)
Quarter: 2011Q3

REPORT INFORMATION
  Report Type: 
  Country: None (occurrence: None)
  Receive Date: 20110720
  Receipt Date: 20110707
  Transmission Date: 20111222
  Serious: Yes (Other)
  Sender: FDA-Public Use
  Company Number: US-ROCHE-649304

PATIENT
  Sex: Female
  Weight: 56.7 kg

DRUGS (5)
  1. ACCUTANE [Suspect]
     Dosage: DOSE INCREASED
     Route: 065
     Dates: start: 20020926
  2. ORTHO TRI-CYCLEN [Concomitant]
     Indication: MENSTRUATION IRREGULAR
     Dates: start: 20020101
  3. ACCUTANE [Suspect]
     Indication: ACNE
     Route: 065
     Dates: start: 20020829
  4. ORTHO TRI-CYCLEN [Concomitant]
     Dates: start: 20020701
  5. ACCUTANE [Suspect]
     Dosage: DOSE INCREASED
     Route: 065
     Dates: start: 20021024, end: 20030201

REACTIONS (11)
  - CROHN'S DISEASE [None]
  - ORAL HERPES [None]
  - CONJUNCTIVITIS VIRAL [None]
  - ANAL STENOSIS [None]
  - DEPRESSION [None]
  - BLOOD TRIGLYCERIDES INCREASED [None]
  - PROCTITIS [None]
  - INFLAMMATORY BOWEL DISEASE [None]
  - COLITIS [None]
  - SMALL INTESTINAL OBSTRUCTION [None]
  - ANORECTAL DISORDER [None]
